FAERS Safety Report 9154596 (Version 1)
Quarter: 2013Q1

REPORT INFORMATION
  Report Type: Spontaneous
  Country: US (occurrence: None)
  Receive Date: 20130305
  Receipt Date: 20130305
  Transmission Date: 20140127
  Serious: Yes (Hospitalization)
  Sender: FDA-Public Use
  Company Number: None

PATIENT
  Age: 59 Year
  Sex: Male

DRUGS (1)
  1. ZYTIGA 250MG JANSSEN BIOTECH [Suspect]
     Indication: PROSTATIC DISORDER
     Dosage: 1000MG DAILY ORALLY
     Route: 048
     Dates: start: 201206

REACTIONS (2)
  - Chest pain [None]
  - Coronary artery occlusion [None]
